FAERS Safety Report 8500599-X (Version None)
Quarter: 2012Q3

REPORT INFORMATION
  Report Type: 
  Country: None (occurrence: None)
  Receive Date: 20120710
  Receipt Date: 20120709
  Transmission Date: 20120928
  Serious: Yes (Other)
  Sender: FDA-Public Use
  Company Number: US-ROCHE-1081165

PATIENT
  Age: 45 Year
  Sex: Female

DRUGS (6)
  1. LAPATINIB [Concomitant]
     Indication: BREAST CANCER METASTATIC
  2. TYKERB [Concomitant]
     Indication: BREAST CANCER METASTATIC
  3. XELODA [Suspect]
     Indication: BREAST CANCER METASTATIC
  4. HERCEPTIN [Suspect]
     Indication: BREAST CANCER METASTATIC
  5. NAVELBINE [Concomitant]
     Indication: BREAST CANCER METASTATIC
  6. TAXOL [Concomitant]
     Indication: BREAST CANCER METASTATIC

REACTIONS (2)
  - METASTASES TO LIVER [None]
  - LIVER FUNCTION TEST ABNORMAL [None]
